FAERS Safety Report 15371677 (Version 1)
Quarter: 2018Q4

REPORT INFORMATION
  Report Type: Spontaneous
  Country: DE (occurrence: DE)
  Receive Date: 20180911
  Receipt Date: 20180911
  Transmission Date: 20190204
  Serious: Yes (Death)
  Sender: FDA-Public Use
  Company Number: PHBS1997DE01438

PATIENT
  Age: 68 Year
  Sex: Male
  Weight: 81 kg

DRUGS (25)
  1. NOVALGIN (METAMIZOLE SODIUM) [Suspect]
     Active Substance: METAMIZOLE SODIUM
     Indication: PAIN
     Dosage: LIQ 45, TID
     Route: 048
     Dates: start: 19951019, end: 19951020
  2. FORTECORTIN [Concomitant]
     Active Substance: DEXAMETHASONE
     Indication: PRODUCT USED FOR UNKNOWN INDICATION
     Dosage: UNK
     Route: 030
     Dates: start: 19951019, end: 19951019
  3. DOLANTIN [Concomitant]
     Active Substance: MEPERIDINE
     Dosage: 50 MG, UNK
     Route: 030
     Dates: start: 19951024
  4. KARIL [Suspect]
     Active Substance: CALCITONIN SALMON
     Indication: NEOPLASM MALIGNANT
     Dosage: AMP 1, QD
     Route: 058
     Dates: start: 19951025
  5. DICLOFENAC [Suspect]
     Active Substance: DICLOFENAC
     Indication: GOUT
     Dosage: 50 MG, TID
     Route: 048
     Dates: start: 19951020
  6. LAXOBERAL [Concomitant]
     Active Substance: SODIUM PICOSULFATE
     Indication: CONSTIPATION
     Dosage: UNK
     Route: 048
     Dates: start: 19951019
  7. VINCRISTIN [Concomitant]
     Active Substance: VINCRISTINE
     Indication: PLASMA CELL MYELOMA
     Dosage: UNK
     Route: 042
     Dates: start: 19951024
  8. SOSTRIL [Concomitant]
     Active Substance: RANITIDINE HYDROCHLORIDE
     Indication: GASTROINTESTINAL DISORDER
     Dosage: UNSPECIFIED
     Route: 048
     Dates: start: 19951019
  9. ACIFUGAN [Suspect]
     Active Substance: ALLOPURINOL\BENZBROMARONE
     Indication: GOUT
     Dosage: 3 DF, TID
     Route: 048
  10. HEPARIN [Suspect]
     Active Substance: HEPARIN SODIUM
     Indication: THROMBOSIS
     Dosage: 7500 IU, BID
     Route: 058
     Dates: start: 19951019
  11. STEROFUNDIN [Concomitant]
     Active Substance: CALCIUM CHLORIDE\MAGNESIUM CHLORIDE\POTASSIUM CHLORIDE\SODIUM ACETATE\SODIUM CHLORIDE
     Indication: ELECTROLYTE IMBALANCE
     Dosage: UNK
     Route: 042
     Dates: start: 19951019
  12. DOLANTIN [Concomitant]
     Active Substance: MEPERIDINE
     Indication: PAIN
     Dosage: 50 MG, UNK
     Route: 030
     Dates: start: 19951019, end: 19951019
  13. ABNOBAVISCUM [Concomitant]
     Indication: PLASMA CELL MYELOMA
     Dosage: UNK UNK, IRD
     Route: 030
     Dates: start: 19951019
  14. ALLOPURINOL. [Suspect]
     Active Substance: ALLOPURINOL
     Indication: GOUT
     Dosage: 100 UNK, UNK
     Route: 048
  15. BIFITERAL [Concomitant]
     Active Substance: LACTULOSE
     Indication: CONSTIPATION
     Dosage: 1 OT, BID
     Route: 048
     Dates: start: 19951019
  16. SODIUM CHLORIDE. [Concomitant]
     Active Substance: SODIUM CHLORIDE
     Indication: HYPONATRAEMIA
     Dosage: UNK
     Route: 042
     Dates: start: 19951019
  17. PASPERTIN [Concomitant]
     Indication: MALAISE
     Dosage: UNSPECIFIED
     Route: 048
     Dates: start: 19951021
  18. IMPLETOL [Concomitant]
     Indication: PAIN
     Dosage: UNK
     Route: 030
     Dates: start: 19951024, end: 19951025
  19. DEVELIN [Concomitant]
     Indication: PAIN
     Dosage: 150 MG, BID
     Route: 048
     Dates: start: 19951019
  20. KCL [Concomitant]
     Active Substance: POTASSIUM CHLORIDE
     Indication: HYPOKALAEMIA
     Dosage: UNK
     Route: 042
     Dates: start: 19951019
  21. LASIX [Concomitant]
     Active Substance: FUROSEMIDE
     Indication: OEDEMA
     Dosage: 20 MG, UNK
     Route: 065
     Dates: start: 19951020
  22. LASIX [Concomitant]
     Active Substance: FUROSEMIDE
     Dosage: 40 MG, UNK
     Route: 065
  23. TRAMAL [Concomitant]
     Active Substance: TRAMADOL
     Indication: PAIN
     Dosage: LIQ 40, BID
     Route: 048
  24. MORPHINE SULFATE. [Concomitant]
     Active Substance: MORPHINE SULFATE
     Indication: PAIN
     Dosage: UNK
     Route: 048
     Dates: start: 19951019
  25. DOXORUBICIN [Concomitant]
     Active Substance: DOXORUBICIN
     Indication: PLASMA CELL MYELOMA
     Dosage: 15 MG, UNK
     Route: 042
     Dates: start: 19951024

REACTIONS (1)
  - Toxic epidermal necrolysis [Fatal]

NARRATIVE: CASE EVENT DATE: 19951026
